FAERS Safety Report 13396833 (Version 3)
Quarter: 2017Q2

REPORT INFORMATION
  Report Type: Spontaneous
  Country: GB (occurrence: GB)
  Receive Date: 20170403
  Receipt Date: 20170417
  Transmission Date: 20170830
  Serious: Yes (Hospitalization)
  Sender: FDA-Public Use
  Company Number: GB-MYLANLABS-2017M1020343

PATIENT

DRUGS (1)
  1. CLOZARIL [Suspect]
     Active Substance: CLOZAPINE
     Indication: SCHIZOPHRENIA
     Dosage: UNK
     Route: 048
     Dates: start: 20060817

REACTIONS (8)
  - Infection [Unknown]
  - Aggression [Unknown]
  - Malaise [Unknown]
  - Urinary tract infection [Unknown]
  - Therapy cessation [Unknown]
  - Urinary retention [Unknown]
  - Limb injury [Unknown]
  - Refusal of examination [Unknown]

NARRATIVE: CASE EVENT DATE: 201704
